FAERS Safety Report 23647612 (Version 1)
Quarter: 2024Q1

REPORT INFORMATION
  Report Type: Spontaneous
  Country: US (occurrence: US)
  Receive Date: 20240319
  Receipt Date: 20240319
  Transmission Date: 20240409
  Serious: Yes (Other)
  Sender: FDA-Public Use
  Company Number: US-Covis Pharma GmbH-2024COV00251

PATIENT
  Age: 78 Year
  Sex: Male

DRUGS (3)
  1. RILUZOLE [Suspect]
     Active Substance: RILUZOLE
     Route: 048
  2. RELYVRIO [Suspect]
     Active Substance: SODIUM PHENYLBUTYRATE\TAURURSODIOL
     Indication: Amyotrophic lateral sclerosis
     Dosage: 1 DOSAGE FORM 1 SACHET ONCE DAILY FOR 3 WEEKS THEN 1 SACHET TWICE DAILY, 2/DAYS
     Route: 048
  3. RADICAVA [Suspect]
     Active Substance: EDARAVONE

REACTIONS (10)
  - Arrhythmia [Unknown]
  - Heart rate increased [Unknown]
  - Stomatitis [Unknown]
  - Nasal congestion [Unknown]
  - Rhinorrhoea [Not Recovered/Not Resolved]
  - Skin exfoliation [Unknown]
  - Dry skin [Unknown]
  - Dysgraphia [Unknown]
  - Gastrointestinal disorder [Not Recovered/Not Resolved]
  - Abdominal discomfort [Unknown]
